FAERS Safety Report 21248214 (Version 1)
Quarter: 2022Q3

REPORT INFORMATION
  Report Type: Spontaneous
  Country: US (occurrence: None)
  Receive Date: 20220823
  Receipt Date: 20220823
  Transmission Date: 20221026
  Serious: Yes (Life-Threatening)
  Sender: FDA-Public Use
  Company Number: None

PATIENT
  Age: 77 Year
  Sex: Male
  Weight: 85.5 kg

DRUGS (1)
  1. XELODA [Suspect]
     Active Substance: CAPECITABINE
     Indication: Colorectal cancer
     Dates: start: 20220809, end: 20220812

REACTIONS (5)
  - Swollen tongue [None]
  - Throat irritation [None]
  - Full blood count decreased [None]
  - General physical health deterioration [None]
  - Thermal burn [None]

NARRATIVE: CASE EVENT DATE: 20220815
